FAERS Safety Report 17203811 (Version 1)
Quarter: 2019Q4

REPORT INFORMATION
  Report Type: Spontaneous
  Country: DE (occurrence: DE)
  Receive Date: 20191226
  Receipt Date: 20191226
  Transmission Date: 20200122
  Serious: Yes (Other)
  Sender: FDA-Public Use
  Company Number: GXKR2014DE004259

PATIENT
  Age: 33 Year
  Sex: Female
  Weight: 97 kg

DRUGS (18)
  1. METOPROLOL SUCCINATE. [Suspect]
     Active Substance: METOPROLOL SUCCINATE
     Dosage: 142.5 MG/DL, UNK (((95-0-47.5)/ SINCE 2012))
     Route: 048
     Dates: start: 20130702, end: 20131217
  2. DOPEGYT [Suspect]
     Active Substance: METHYLDOPA
     Indication: RENAL HYPERTENSION
     Dosage: 250 MG, Q12H
     Route: 048
     Dates: start: 20130702, end: 20140114
  3. AMLODIPINE [Concomitant]
     Active Substance: AMLODIPINE BESYLATE
     Indication: RENAL HYPERTENSION
     Dosage: 7.5 [MG/D (2.5-0-5) ]
     Route: 048
  4. FOLIC ACID. [Concomitant]
     Active Substance: FOLIC ACID
     Indication: PROPHYLAXIS OF NEURAL TUBE DEFECT
     Dosage: 0.6 MG, QD
     Route: 048
     Dates: start: 20130702, end: 20131217
  5. BETAMETHASONE. [Concomitant]
     Active Substance: BETAMETHASONE
     Indication: MATERNAL THERAPY TO ENHANCE FOETAL LUNG MATURITY
     Dosage: IN WEEK 25+3, 25+4 AND AGAIN IN WEEK 28+0
     Route: 065
  6. BELOC-ZOC MITE [Concomitant]
     Active Substance: METOPROLOL SUCCINATE
     Indication: RENAL HYPERTENSION
     Dosage: 70.75 [MG/D (47.5-0-23.75) ]/ SINCE WHEN?. PROBABLY THERAPY STARTED EARLIER.
     Route: 048
     Dates: start: 20140114, end: 20140114
  7. AZATHIOPRINE. [Suspect]
     Active Substance: AZATHIOPRINE
     Indication: PROPHYLAXIS AGAINST TRANSPLANT REJECTION
     Dosage: 50 MG, QD
     Route: 048
  8. L-THYROXIN ^HENNING BERLIN^ [Concomitant]
     Active Substance: LEVOTHYROXINE
     Indication: HYPOTHYROIDISM
     Dosage: 25 [?G/D (BIS 12.5) ]
     Route: 048
     Dates: start: 20130702, end: 20140114
  9. ADALAT [Concomitant]
     Active Substance: NIFEDIPINE
     Indication: TOCOLYSIS
     Dosage: UNK
     Route: 042
  10. AZATHIOPRINE. [Suspect]
     Active Substance: AZATHIOPRINE
     Dosage: 100 MG, QD (50 MG, 2X/DAY (BID))
     Route: 048
     Dates: start: 20130702, end: 20140114
  11. PROGRAF [Suspect]
     Active Substance: TACROLIMUS
     Dosage: 5.5 [MG/D (3-0-2.5 MG/D) ]/ SINCE 2007
     Route: 048
     Dates: start: 20130702
  12. AMPICILLIN [Concomitant]
     Active Substance: AMPICILLIN
     Indication: ANTIBIOTIC PROPHYLAXIS
     Dosage: UNK
     Route: 065
     Dates: start: 20140114, end: 20140114
  13. METOPROLOL SUCCINATE. [Suspect]
     Active Substance: METOPROLOL SUCCINATE
     Indication: RENAL HYPERTENSION
     Dosage: UNK (0 - 24 GESTATIONAL WEEK)
     Route: 048
  14. PROGRAF [Suspect]
     Active Substance: TACROLIMUS
     Indication: PROPHYLAXIS AGAINST TRANSPLANT REJECTION
     Dosage: UNK (5.5 [MG/D (3-0-2.5 MG/D)])
     Route: 048
     Dates: start: 2007, end: 20140614
  15. DEKRISTOL [Concomitant]
     Active Substance: CHOLECALCIFEROL
     Indication: VITAMIN SUPPLEMENTATION
     Dosage: 20000 IU, QW
     Route: 048
     Dates: start: 20130702, end: 20131217
  16. PARTUSISTEN [Concomitant]
     Active Substance: FENOTEROL
     Indication: TOCOLYSIS
     Dosage: UNK
     Route: 042
     Dates: start: 20140114, end: 20140114
  17. BELOC-ZOK COMP [Concomitant]
     Active Substance: HYDROCHLOROTHIAZIDE\METOPROLOL SUCCINATE
     Indication: RENAL HYPERTENSION
     Dosage: 70.75 [MG/D (47.5-0-23.75)]
     Route: 048
     Dates: start: 20140114, end: 20140114
  18. THYROXIN [Concomitant]
     Active Substance: LEVOTHYROXINE
     Indication: HYPOTHYROIDISM
     Dosage: 12.5 UG, Q12H (12.5 ?G, 2X/DAY (BID))
     Route: 048
     Dates: start: 20130702, end: 20140114

REACTIONS (4)
  - Maternal exposure during pregnancy [Unknown]
  - Polyhydramnios [Recovered/Resolved]
  - Premature delivery [Unknown]
  - Cervical incompetence [Unknown]

NARRATIVE: CASE EVENT DATE: 20130702
